FAERS Safety Report 8447992-1 (Version None)
Quarter: 2012Q2

REPORT INFORMATION
  Report Type: 
  Country: None (occurrence: None)
  Receive Date: 20120619
  Receipt Date: 20120605
  Transmission Date: 20120825
  Serious: Yes (Hospitalization)
  Sender: FDA-Public Use
  Company Number: US-BAYER-2012-057985

PATIENT
  Sex: Female

DRUGS (18)
  1. ANAGRELIDE HCL [Suspect]
     Dosage: UNK
     Dates: start: 20090214
  2. AMITRIPTYLINE HCL [Suspect]
     Indication: MIGRAINE
     Dosage: UNK
     Dates: start: 20070403, end: 20070501
  3. PEGINTERFERON ALFA-2A [Suspect]
     Dosage: UNK
     Dates: start: 20070301, end: 20070529
  4. ANAGRELIDE HCL [Suspect]
     Dosage: UNK
     Dates: start: 20071222
  5. PEGINTERFERON ALFA-2A [Suspect]
     Dosage: UNK
     Dates: start: 20070718, end: 20070826
  6. ENOXAPARIN [Suspect]
     Indication: PROPHYLAXIS
     Dosage: UNK
     Dates: start: 20070427, end: 20070617
  7. TRAMADOL HCL [Suspect]
     Indication: MIGRAINE
     Dosage: UNK
     Dates: start: 20070525
  8. TRAMADOL HCL [Suspect]
     Indication: EAR PAIN
  9. ANAGRELIDE HCL [Suspect]
     Dosage: UNK
     Dates: start: 20070726, end: 20071218
  10. ANAGRELIDE HCL [Suspect]
     Dosage: UNK
     Dates: start: 20070525, end: 20070718
  11. PEGINTERFERON ALFA-2A [Suspect]
     Dosage: UNK
     Dates: start: 20000201, end: 20000601
  12. PEGINTERFERON ALFA-2A [Suspect]
     Dosage: UNK
     Dates: start: 20060814, end: 20061204
  13. ANAGRELIDE HCL [Suspect]
     Dosage: UNK
     Dates: start: 20061222, end: 20070301
  14. ANAGRELIDE HCL [Suspect]
     Indication: ESSENTIAL THROMBOCYTHAEMIA
     Dosage: UNK
     Dates: start: 20071118, end: 20071214
  15. ANAGRELIDE HCL [Suspect]
     Dosage: UNK
     Dates: start: 20080905, end: 20090213
  16. PEGINTERFERON ALFA-2A [Suspect]
     Indication: ESSENTIAL THROMBOCYTHAEMIA
     Dosage: UNK
     Dates: start: 20071218, end: 20071222
  17. ASPIRIN [Suspect]
     Indication: ESSENTIAL THROMBOCYTHAEMIA
     Dosage: UNK
     Dates: start: 20020101, end: 20020101
  18. HYDROXYUREA [Suspect]
     Indication: ESSENTIAL THROMBOCYTHAEMIA
     Dosage: UNK
     Dates: start: 19980101, end: 20061120

REACTIONS (6)
  - MATERNAL EXPOSURE DURING PREGNANCY [None]
  - ABORTION SPONTANEOUS [None]
  - COMPLICATION OF PREGNANCY [None]
  - COMPLICATION OF DELIVERY [None]
  - ABORTION INDUCED [None]
  - LABOUR COMPLICATION [None]
